FAERS Safety Report 12555425 (Version 1)
Quarter: 2016Q3

REPORT INFORMATION
  Report Type: Spontaneous
  Country: PL (occurrence: PL)
  Receive Date: 20160714
  Receipt Date: 20160714
  Transmission Date: 20161109
  Serious: Yes (Hospitalization, Other)
  Sender: FDA-Public Use
  Company Number: PL-ACCORD-042234

PATIENT
  Age: 65 Year
  Sex: Male

DRUGS (1)
  1. GEMCITABINE/GEMCITABINE HYDROCHLORIDE [Suspect]
     Active Substance: GEMCITABINE\GEMCITABINE HYDROCHLORIDE
     Indication: PANCREATIC CARCINOMA
     Dosage: 4.5 COURSES OF CT MODIFIED REGIMEN ON DAYS 1 AND 7 EVERY 3 WEEKS
     Route: 042

REACTIONS (9)
  - Anaemia [Unknown]
  - Thrombocytopenia [Unknown]
  - Pulmonary embolism [Recovered/Resolved]
  - Metastases to liver [Unknown]
  - Pain [Unknown]
  - Neutropenia [Unknown]
  - Ventricular failure [Recovered/Resolved]
  - Cardiotoxicity [Unknown]
  - Weight decreased [Unknown]
